FAERS Safety Report 10412595 (Version 1)
Quarter: 2014Q3

REPORT INFORMATION
  Report Type: Spontaneous
  Country: CN (occurrence: CN)
  Receive Date: 20140827
  Receipt Date: 20140827
  Transmission Date: 20150326
  Serious: Yes (Life-Threatening, Other)
  Sender: FDA-Public Use
  Company Number: CN-PFIZER INC-2014233373

PATIENT
  Age: 73 Year
  Sex: Male
  Weight: 65 kg

DRUGS (2)
  1. DIFLUCAN [Suspect]
     Active Substance: FLUCONAZOLE
     Indication: CANDIDA INFECTION
     Dosage: 0.4 G, 1X/DAY
     Route: 042
     Dates: start: 20140303, end: 20140306
  2. DIFLUCAN [Suspect]
     Active Substance: FLUCONAZOLE
     Indication: SEPSIS
     Dosage: 0.4 G, UNK
     Dates: start: 20140226

REACTIONS (4)
  - Cough [Unknown]
  - Ventricular arrhythmia [Recovering/Resolving]
  - Ventricular tachycardia [Recovering/Resolving]
  - Productive cough [Unknown]

NARRATIVE: CASE EVENT DATE: 20140306
